FAERS Safety Report 5984679-9 (Version None)
Quarter: 2008Q4

REPORT INFORMATION
  Report Type: 
  Country: None (occurrence: None)
  Receive Date: 20081202
  Receipt Date: 20081117
  Transmission Date: 20090506
  Serious: Yes (Hospitalization)
  Sender: FDA-Public Use
  Company Number: 2008002989

PATIENT
  Age: 75 Year
  Sex: Female
  Weight: 65 kg

DRUGS (8)
  1. ERLOTINIB (ERLOTINIB) (TABLET) (ERLOTINIB) [Suspect]
     Indication: LUNG ADENOCARCINOMA
     Dosage: SEE IMAGE
     Route: 048
     Dates: start: 20080401, end: 20080523
  2. ERLOTINIB (ERLOTINIB) (TABLET) (ERLOTINIB) [Suspect]
     Indication: LUNG ADENOCARCINOMA
     Dosage: SEE IMAGE
     Route: 048
     Dates: start: 20080312, end: 20080912
  3. VITAMEDIN [Concomitant]
  4. METHYCOBAL (MECOBALAMIN) [Concomitant]
  5. PRAVASTATIN [Concomitant]
  6. LOXONIN (LOXOPROFEN SODIUM) [Concomitant]
  7. SELBEX (TEPRENONE) [Concomitant]
  8. NAUZELIN (DOMPERIDONE) [Concomitant]

REACTIONS (4)
  - ARTERIAL THROMBOSIS LIMB [None]
  - MALIGNANT NEOPLASM PROGRESSION [None]
  - METASTASES TO SPINE [None]
  - NON-SMALL CELL LUNG CANCER STAGE IV [None]
